FAERS Safety Report 5237874-0 (Version None)
Quarter: 2007Q1

REPORT INFORMATION
  Report Type: 
  Country: None (occurrence: None)
  Receive Date: 20070209
  Receipt Date: 20070124
  Transmission Date: 20070707
  Serious: Yes (Hospitalization)
  Sender: FDA-Public Use
  Company Number: OSI3364G

PATIENT
  Age: 62 Year
  Sex: Male
  Weight: 42.6 kg

DRUGS (4)
  1. ERLOTINIB (TABLET) [Suspect]
     Indication: NON-SMALL CELL LUNG CANCER
     Dosage: 150 MG (QD), ORAL
     Route: 048
     Dates: start: 20061115, end: 20061127
  2. BEVACIZUMAB OR PLACEBO (INJECTION FOR INFUSION) [Suspect]
     Indication: NON-SMALL CELL LUNG CANCER
     Dosage: 765 MG (Q3W), INTRAVENOUS
     Route: 042
     Dates: start: 20061115, end: 20061127
  3. BEVACIZUMAB OR PLACEBO (INJECTION FOR INFUSION) [Suspect]
  4. BEVACIZUMAB OR PLACEBO (INJECTION FOR INFUSION) [Suspect]

REACTIONS (6)
  - INFECTION [None]
  - MUCOSAL INFLAMMATION [None]
  - OESOPHAGEAL STENOSIS [None]
  - RADIATION INJURY [None]
  - RASH PUSTULAR [None]
  - WEIGHT DECREASED [None]
